FAERS Safety Report 20499513 (Version 6)
Quarter: 2023Q1

REPORT INFORMATION
  Report Type: Report from Study
  Country: AR (occurrence: AR)
  Receive Date: 20220222
  Receipt Date: 20230323
  Transmission Date: 20230418
  Serious: Yes (Hospitalization, Other)
  Sender: FDA-Public Use
  Company Number: AR-NOVARTISPH-NVSC2021AR293758

PATIENT
  Sex: Female

DRUGS (2)
  1. MAYZENT [Suspect]
     Active Substance: SIPONIMOD
     Indication: Multiple sclerosis
     Dosage: 2 MG, QD (VIA MOUTH)
     Route: 048
     Dates: start: 20211115
  2. MAYZENT [Suspect]
     Active Substance: SIPONIMOD
     Indication: Secondary progressive multiple sclerosis

REACTIONS (29)
  - Fall [Unknown]
  - Blindness [Unknown]
  - Paralysis [Unknown]
  - Multiple sclerosis [Unknown]
  - Skin depigmentation [Unknown]
  - Anaemia [Unknown]
  - Onychomycosis [Unknown]
  - Visual acuity reduced [Unknown]
  - Unevaluable event [Unknown]
  - Sensory disturbance [Not Recovered/Not Resolved]
  - Ocular discomfort [Not Recovered/Not Resolved]
  - COVID-19 [Recovering/Resolving]
  - Headache [Unknown]
  - Blood pressure decreased [Recovered/Resolved]
  - Discomfort [Not Recovered/Not Resolved]
  - Condition aggravated [Unknown]
  - Illness [Unknown]
  - Gastric disorder [Unknown]
  - Gastritis [Unknown]
  - Affect lability [Unknown]
  - Cognitive disorder [Unknown]
  - Delusion [Unknown]
  - White blood cell count decreased [Unknown]
  - Urinary tract infection [Unknown]
  - Drug intolerance [Unknown]
  - Fluid retention [Unknown]
  - Joint swelling [Unknown]
  - Peripheral swelling [Unknown]
  - Liver disorder [Unknown]

NARRATIVE: CASE EVENT DATE: 20210101
